FAERS Safety Report 14974965 (Version 1)
Quarter: 2018Q2

REPORT INFORMATION
  Report Type: Spontaneous
  Country: GB (occurrence: GB)
  Receive Date: 20180605
  Receipt Date: 20180605
  Transmission Date: 20180711
  Serious: Yes (Hospitalization)
  Sender: FDA-Public Use
  Company Number: GB-BAYER-2018-103964

PATIENT
  Age: 59 Year
  Sex: Female

DRUGS (1)
  1. BETAFERON [Suspect]
     Active Substance: INTERFERON BETA-1B
     Indication: MULTIPLE SCLEROSIS
     Dosage: 8 MIU, QOD
     Route: 058
     Dates: start: 20140723

REACTIONS (4)
  - Cerebrovascular accident [None]
  - Dysphagia [None]
  - Aphasia [None]
  - Gait disturbance [None]

NARRATIVE: CASE EVENT DATE: 20180506
